FAERS Safety Report 10188647 (Version 1)
Quarter: 2014Q2

REPORT INFORMATION
  Report Type: Spontaneous
  Country: US (occurrence: US)
  Receive Date: 20140522
  Receipt Date: 20140522
  Transmission Date: 20141212
  Serious: Yes (Hospitalization)
  Sender: FDA-Public Use
  Company Number: US-INCYTE CORPORATION-2014IN001302

PATIENT
  Age: 76 Year
  Sex: Male

DRUGS (9)
  1. JAKAFI [Suspect]
     Indication: MYELOFIBROSIS
     Dosage: 15 MG, BID
     Route: 048
     Dates: start: 2012
  2. ALLOPURINOL [Concomitant]
  3. CEFAZOLIN [Concomitant]
  4. FAMCICLOVIR [Concomitant]
  5. GABAPENTIN [Concomitant]
  6. HYDROMORPHONE [Concomitant]
  7. LEVOTHYROXINE [Concomitant]
  8. PANTOPRAZOLE [Concomitant]
  9. COMPAZINE                          /00013302/ [Concomitant]

REACTIONS (2)
  - Limb injury [Recovering/Resolving]
  - Herpes zoster [Recovering/Resolving]
